FAERS Safety Report 21868615 (Version 1)
Quarter: 2023Q1

REPORT INFORMATION
  Report Type: Other
  Country: None (occurrence: GB)
  Receive Date: 20230117
  Receipt Date: 20230117
  Transmission Date: 20230418
  Serious: Yes (Life-Threatening, Hospitalization)
  Sender: FDA-Public Use
  Company Number: GB-Ajanta Pharma USA Inc.-2136766

PATIENT
  Age: 7 Decade
  Sex: Male

DRUGS (11)
  1. RANOLAZINE [Suspect]
     Active Substance: RANOLAZINE
     Indication: Product used for unknown indication
     Route: 065
  2. NICORANDIL [Suspect]
     Active Substance: NICORANDIL
     Route: 065
  3. EMPAGLIFLOZIN [Concomitant]
     Active Substance: EMPAGLIFLOZIN
  4. METFORMIN [Concomitant]
     Active Substance: METFORMIN HYDROCHLORIDE
  5. RAMIPRIL [Concomitant]
     Active Substance: RAMIPRIL
  6. FUROSEMIDE [Concomitant]
     Active Substance: FUROSEMIDE
  7. BISOPROLOL. [Concomitant]
     Active Substance: BISOPROLOL FUMARATE
  8. AMLODIPINE [Concomitant]
     Active Substance: AMLODIPINE BESYLATE
  9. ATORVASTATIN CALCIUM [Concomitant]
     Active Substance: ATORVASTATIN CALCIUM
  10. ASPIRIN [Concomitant]
     Active Substance: ASPIRIN
  11. Glycerol Trinitrate [Concomitant]

REACTIONS (5)
  - Suicide attempt [Recovered/Resolved]
  - Intentional overdose [Recovered/Resolved]
  - Hypotension [Recovered/Resolved]
  - Cardiac arrest [Recovered/Resolved]
  - Electrocardiogram QT prolonged [Recovered/Resolved]
